FAERS Safety Report 10706561 (Version 2)
Quarter: 2016Q4

REPORT INFORMATION
  Report Type: Spontaneous
  Country: SG (occurrence: SG)
  Receive Date: 20150113
  Receipt Date: 20161203
  Transmission Date: 20170206
  Serious: Yes (Hospitalization)
  Sender: FDA-Public Use
  Company Number: SG-RANBAXY-2014R1-91334

PATIENT
  Age: 21 Year
  Sex: Male

DRUGS (1)
  1. ACETAMINOPHEN. [Suspect]
     Active Substance: ACETAMINOPHEN
     Indication: TENSION HEADACHE
     Dosage: 20-30 DF, SINGLE
     Route: 048

REACTIONS (3)
  - Liver function test abnormal [Recovering/Resolving]
  - Intentional overdose [Recovering/Resolving]
  - Haemolysis [Recovering/Resolving]
